FAERS Safety Report 7284004-X (Version None)
Quarter: 2011Q1

REPORT INFORMATION
  Report Type: 
  Country: None (occurrence: None)
  Receive Date: 20110209
  Receipt Date: 20110201
  Transmission Date: 20110831
  Serious: Yes (Other)
  Sender: FDA-Public Use
  Company Number: US-ABBOTT-11P-163-0702465-00

PATIENT
  Sex: Female
  Weight: 69.462 kg

DRUGS (13)
  1. IMIPRAMINE [Concomitant]
     Indication: INSOMNIA
  2. MAGNESIUM [Concomitant]
     Indication: BLOOD MAGNESIUM DECREASED
  3. CORTISONE [Concomitant]
     Indication: OSTEOARTHRITIS
     Dosage: EVERY 60 TO 90 DAYS
     Route: 050
  4. HUMIRA [Suspect]
  5. PREDNISONE [Concomitant]
     Indication: BACK PAIN
  6. POTASSIUM [Concomitant]
     Indication: PROPHYLAXIS
  7. VITAMIN B-12 [Concomitant]
     Indication: ASTHENIA
  8. POTASSIUM [Concomitant]
     Indication: HYPOKALAEMIA
  9. CALCIUM [Concomitant]
     Indication: PROPHYLAXIS
  10. HUMIRA [Suspect]
     Indication: RHEUMATOID ARTHRITIS
     Dates: start: 20091101
  11. BONIVA [Concomitant]
     Indication: OSTEOPOROSIS
  12. PLAQUENIL [Concomitant]
     Indication: ARTHRITIS
  13. CALCIUM [Concomitant]
     Indication: CALCIUM DEFICIENCY

REACTIONS (5)
  - ARTHRALGIA [None]
  - HYPOAESTHESIA [None]
  - JOINT STIFFNESS [None]
  - HEART RATE DECREASED [None]
  - PARAESTHESIA [None]
